FAERS Safety Report 7241135-8 (Version None)
Quarter: 2011Q1

REPORT INFORMATION
  Report Type: 
  Country: None (occurrence: None)
  Receive Date: 20110120
  Receipt Date: 20110120
  Transmission Date: 20110831
  Serious: Yes (Disabling)
  Sender: FDA-Public Use
  Company Number: None

PATIENT
  Age: 70 Year
  Sex: Female
  Weight: 85.2762 kg

DRUGS (3)
  1. ATENOLOL [Concomitant]
  2. LEVAQUIN [Suspect]
     Indication: CYSTITIS
     Dosage: 1 - 500 MG. TAB FOR 5 DAYS ORALLY
     Route: 048
     Dates: start: 20101110, end: 20101114
  3. LEVAQUIN [Suspect]
     Indication: DISEASE RECURRENCE
     Dosage: 1 - 500 MG. TAB FOR 5 DAYS ORALLY
     Route: 048
     Dates: start: 20101110, end: 20101114

REACTIONS (5)
  - CONDITION AGGRAVATED [None]
  - MUSCLE SPASMS [None]
  - MUSCULAR WEAKNESS [None]
  - GAIT DISTURBANCE [None]
  - FIBROMYALGIA [None]
